FAERS Safety Report 8990860 (Version 1)
Quarter: 2012Q4

REPORT INFORMATION
  Report Type: 
  Country: US (occurrence: US)
  Receive Date: 20121231
  Receipt Date: 20121231
  Transmission Date: 20130627
  Serious: Yes (Other)
  Sender: FDA-Public Use
  Company Number: PHEH2011US008757

PATIENT
  Sex: Male
  Weight: 186 kg

DRUGS (5)
  1. GLEEVEC [Suspect]
     Indication: CHRONIC MYELOID LEUKAEMIA
     Dosage: 400 mg, QD
     Route: 048
     Dates: start: 20110830
  2. TOPROL XL [Concomitant]
     Dosage: 50 mg daily
     Route: 048
  3. IMIQUIMOD [Concomitant]
     Dosage: UNK UKN, UNK
  4. BICALUTAMIDE [Concomitant]
     Dosage: 50 mg daily
     Route: 048
  5. HYDROCHLOROTHIAZIDE [Concomitant]
     Dosage: 25 mg daily
     Route: 048

REACTIONS (15)
  - Colon cancer metastatic [Unknown]
  - Second primary malignancy [Unknown]
  - Blood pressure systolic increased [Unknown]
  - Abdominal discomfort [Not Recovered/Not Resolved]
  - Dysgeusia [Unknown]
  - Retching [Unknown]
  - Nausea [Unknown]
  - Vomiting [Unknown]
  - Rash [Recovering/Resolving]
  - Malaise [Unknown]
  - Asthenia [Unknown]
  - Fatigue [Unknown]
  - Diarrhoea [Not Recovered/Not Resolved]
  - Nasal congestion [Unknown]
  - Anxiety [Unknown]
